FAERS Safety Report 16320819 (Version 1)
Quarter: 2019Q2

REPORT INFORMATION
  Report Type: Other
  Country: NL (occurrence: NL)
  Receive Date: 20190516
  Receipt Date: 20190516
  Transmission Date: 20190711
  Serious: Yes (Other)
  Sender: FDA-Public Use
  Company Number: NL-APOTEX-2019AP014028

PATIENT
  Age: 35 Year
  Sex: Female
  Weight: 86 kg

DRUGS (1)
  1. CELECOXIB. [Suspect]
     Active Substance: CELECOXIB
     Indication: PAIN
     Dosage: 100 MG, QD, (100 MG PER DAG)
     Route: 065
     Dates: start: 20190405, end: 20190406

REACTIONS (8)
  - Visual impairment [Recovered/Resolved]
  - Nausea [Recovered/Resolved]
  - Dizziness [Recovered/Resolved]
  - Feeling cold [Recovered/Resolved]
  - Vertigo [Recovered/Resolved]
  - Palpitations [Recovered/Resolved]
  - Deafness [Recovered/Resolved]
  - Restlessness [Recovered/Resolved]

NARRATIVE: CASE EVENT DATE: 20190405
